FAERS Safety Report 4269637-7 (Version None)
Quarter: 2004Q1

REPORT INFORMATION
  Report Type: 
  Country: None (occurrence: None)
  Receive Date: 20040112
  Receipt Date: 20040106
  Transmission Date: 20041129
  Serious: Yes (Life-Threatening, Hospitalization)
  Sender: FDA-Public Use
  Company Number: 03P-062-0245368-00

PATIENT
  Age: 58 Year
  Sex: Male

DRUGS (3)
  1. HUMIRA [Suspect]
     Indication: RHEUMATOID ARTHRITIS
     Dosage: 40 MG, SUBCUTANEOUS
     Route: 058
     Dates: start: 20031021, end: 20031216
  2. NSAID'S [Concomitant]
  3. ISONIAZID [Concomitant]

REACTIONS (3)
  - ALCOHOL USE [None]
  - PANCREATITIS NECROTISING [None]
  - REFUSAL OF TREATMENT BY PATIENT [None]
